FAERS Safety Report 9206781 (Version 1)
Quarter: 2013Q2

REPORT INFORMATION
  Report Type: Spontaneous
  Country: US (occurrence: None)
  Receive Date: 20130401
  Receipt Date: 20130401
  Transmission Date: 20140414
  Serious: Yes (Hospitalization)
  Sender: FDA-Public Use
  Company Number: None

PATIENT
  Age: 71 Year
  Sex: Male

DRUGS (1)
  1. ZYTIGA 250MG JANSSEN BIOTECH INC [Suspect]
     Route: 048
     Dates: start: 20130218, end: 20130311

REACTIONS (3)
  - Renal disorder [None]
  - Oedema [None]
  - Dyspnoea [None]
